FAERS Safety Report 4788714-5 (Version None)
Quarter: 2005Q4

REPORT INFORMATION
  Report Type: 
  Country: None (occurrence: None)
  Receive Date: 20051005
  Receipt Date: 20050915
  Transmission Date: 20060501
  Serious: Yes (Hospitalization)
  Sender: FDA-Public Use
  Company Number: JP-ROCHE-417805

PATIENT
  Age: 39 Year
  Sex: Male

DRUGS (9)
  1. PEGASYS [Suspect]
     Route: 058
     Dates: start: 20041015, end: 20050808
  2. LOXONIN [Concomitant]
     Route: 048
     Dates: start: 20041208, end: 20050826
  3. SELBEX [Concomitant]
     Route: 048
     Dates: start: 20041208, end: 20050826
  4. DEPAS [Concomitant]
     Route: 048
     Dates: start: 20041208
  5. AMOBAN [Concomitant]
     Route: 048
     Dates: start: 20041208
  6. MYSLEE [Concomitant]
     Route: 048
     Dates: start: 20041208
  7. CALONAL [Concomitant]
     Route: 048
     Dates: start: 20050105, end: 20050826
  8. PAXIL [Concomitant]
     Route: 048
     Dates: start: 20050302
  9. GASTER [Concomitant]
     Route: 048
     Dates: start: 20050413, end: 20050826

REACTIONS (7)
  - BLOOD GLUCOSE DECREASED [None]
  - CAROTID ARTERY ANEURYSM [None]
  - CONVULSION [None]
  - EATING DISORDER [None]
  - GENERAL PHYSICAL HEALTH DETERIORATION [None]
  - LOSS OF CONSCIOUSNESS [None]
  - MITRAL VALVE INCOMPETENCE [None]
